FAERS Safety Report 5943009-9 (Version None)
Quarter: 2008Q4

REPORT INFORMATION
  Report Type: 
  Country: None (occurrence: None)
  Receive Date: 20081106
  Receipt Date: 20081006
  Transmission Date: 20090506
  Serious: No
  Sender: FDA-Public Use
  Company Number: US-BAYER-200833388NA

PATIENT
  Sex: Female

DRUGS (1)
  1. BETAPACE [Suspect]
     Indication: ATRIAL FIBRILLATION
     Dates: start: 20080401

REACTIONS (3)
  - ALOPECIA [None]
  - DYSGEUSIA [None]
  - HAIR TEXTURE ABNORMAL [None]
